FAERS Safety Report 6023477-7 (Version None)
Quarter: 2008Q4

REPORT INFORMATION
  Report Type: 
  Country: None (occurrence: None)
  Receive Date: 20081222
  Receipt Date: 20080825
  Transmission Date: 20090506
  Serious: No
  Sender: FDA-Public Use
  Company Number: SPV1-2008-01833

PATIENT
  Age: 17 Year
  Sex: Male

DRUGS (1)
  1. VYVANSE [Suspect]
     Indication: ATTENTION DEFICIT/HYPERACTIVITY DISORDER
     Dosage: 30 MG
     Dates: start: 20080101, end: 20080101

REACTIONS (2)
  - DRUG EFFECT DECREASED [None]
  - OFF LABEL USE [None]
